FAERS Safety Report 24611004 (Version 1)
Quarter: 2024Q4

REPORT INFORMATION
  Report Type: Spontaneous
  Country: US (occurrence: US)
  Receive Date: 20241112
  Receipt Date: 20241112
  Transmission Date: 20250115
  Serious: No
  Sender: SANOFI AVENTIS
  Company Number: US-SA-2024SA323399

PATIENT
  Age: 68 Year
  Sex: Male
  Weight: 84.82 kg

DRUGS (1)
  1. DUPIXENT [Suspect]
     Active Substance: DUPILUMAB
     Dosage: 300 MG, BI3W (2 TIMES EVERY 3 WEEKS)
     Route: 065
     Dates: start: 20240505, end: 20240607

REACTIONS (3)
  - Weight increased [Unknown]
  - Abdominal discomfort [Unknown]
  - Insomnia [Unknown]

NARRATIVE: CASE EVENT DATE: 20240101
